FAERS Safety Report 18032110 (Version 2)
Quarter: 2020Q3

REPORT INFORMATION
  Report Type: Report from Study
  Country: CA (occurrence: CA)
  Receive Date: 20200716
  Receipt Date: 20200730
  Transmission Date: 20201103
  Serious: Yes (Hospitalization, Other)
  Sender: FDA-Public Use
  Company Number: CA-AMGEN-CANSL2020087983

PATIENT
  Age: 28 Year
  Sex: Female
  Weight: 54 kg

DRUGS (3)
  1. NPLATE [Suspect]
     Active Substance: ROMIPLOSTIM
     Dosage: 250 MICROGRAM, QWK
     Route: 058
     Dates: start: 20190211
  2. NPLATE [Suspect]
     Active Substance: ROMIPLOSTIM
     Dosage: 750 MICROGRAM, QWK/ NPLATE DOSE ADJUSTED DEPENDING ON HER RESPONSE, LOWEST DOSE BEING 200 MICROGRAM
     Route: 058
     Dates: end: 202003
  3. NPLATE [Suspect]
     Active Substance: ROMIPLOSTIM
     Indication: IMMUNE THROMBOCYTOPENIA
     Dosage: UNK
     Route: 058
     Dates: start: 2012

REACTIONS (6)
  - Haemoperitoneum [Recovered/Resolved]
  - Adnexal torsion [Unknown]
  - Reticulin increased [Unknown]
  - Ovarian haemorrhage [Recovered/Resolved]
  - Thrombocytopenia [Not Recovered/Not Resolved]
  - Therapy non-responder [Unknown]

NARRATIVE: CASE EVENT DATE: 202001
